FAERS Safety Report 17552633 (Version 1)
Quarter: 2020Q1

REPORT INFORMATION
  Report Type: Spontaneous
  Country: US (occurrence: US)
  Receive Date: 20200317
  Receipt Date: 20200317
  Transmission Date: 20200409
  Serious: Yes (Hospitalization, Other)
  Sender: FDA-Public Use
  Company Number: US-NAPPMUNDI-USA-2020-0150321

PATIENT

DRUGS (1)
  1. OXYCONTIN [Suspect]
     Active Substance: OXYCODONE HYDROCHLORIDE
     Indication: PAIN
     Route: 048

REACTIONS (10)
  - Drug dependence [Unknown]
  - Fine motor skill dysfunction [Unknown]
  - Coordination abnormal [Unknown]
  - Cerebral disorder [Unknown]
  - Cognitive disorder [Unknown]
  - Vomiting [Unknown]
  - Drug withdrawal syndrome [Unknown]
  - Hypertension [Unknown]
  - Dehydration [Unknown]
  - Quality of life decreased [Unknown]
